FAERS Safety Report 8016196-9 (Version None)
Quarter: 2011Q4

REPORT INFORMATION
  Report Type: 
  Country: None (occurrence: None)
  Receive Date: 20111230
  Receipt Date: 20111219
  Transmission Date: 20120403
  Serious: Yes (Other)
  Sender: FDA-Public Use
  Company Number: GB-MYLANLABS-2011S1026250

PATIENT
  Age: 34 Year
  Sex: Female

DRUGS (6)
  1. TENOFOVIR [Interacting]
     Indication: HIV INFECTION
     Route: 065
  2. ZIDOVUDINE [Suspect]
     Indication: HIV INFECTION
     Route: 065
     Dates: start: 20050801
  3. LAMIVUDINE [Interacting]
     Indication: HIV INFECTION
     Route: 065
     Dates: start: 20050801
  4. EMTRICITABINE [Interacting]
     Indication: HIV INFECTION
     Route: 065
  5. EFAVIRENZ [Interacting]
     Indication: HIV INFECTION
     Route: 065
     Dates: start: 20050801
  6. IMPLANON [Interacting]
     Indication: CONTRACEPTION
     Route: 059
     Dates: start: 20051101

REACTIONS (3)
  - DRUG INTERACTION [None]
  - DRUG INEFFECTIVE [None]
  - ECTOPIC PREGNANCY [None]
